FAERS Safety Report 24144140 (Version 1)
Quarter: 2024Q3

REPORT INFORMATION
  Report Type: Report from Study
  Country: US (occurrence: US)
  Receive Date: 20240727
  Receipt Date: 20240727
  Transmission Date: 20241016
  Serious: Yes (Hospitalization, Other)
  Sender: HLS THERAPEUTICS
  Company Number: US-HLS-202400356

PATIENT
  Sex: Female

DRUGS (2)
  1. CLOZAPINE [Suspect]
     Active Substance: CLOZAPINE
     Indication: Schizophrenia
     Dosage: 150 MG
     Route: 048
  2. CLOZAPINE [Suspect]
     Active Substance: CLOZAPINE
     Indication: Schizophrenia
     Dosage: RESTARTED ON 50 MG ON JULY 7TH, ON 12T-JUL-2024 100MG
     Route: 048

REACTIONS (3)
  - Hypovolaemia [Unknown]
  - Colitis microscopic [Unknown]
  - Sepsis [Unknown]
